FAERS Safety Report 7553374-7 (Version None)
Quarter: 2011Q2

REPORT INFORMATION
  Report Type: 
  Country: None (occurrence: None)
  Receive Date: 20110617
  Receipt Date: 20110324
  Transmission Date: 20111010
  Serious: No
  Sender: FDA-Public Use
  Company Number: A0920398A

PATIENT
  Age: 79 Year
  Sex: Female

DRUGS (2)
  1. PROMACTA [Suspect]
     Indication: IDIOPATHIC THROMBOCYTOPENIC PURPURA
     Dosage: 75MG PER DAY
     Route: 048
     Dates: start: 20110125
  2. ANTIBIOTIC [Suspect]
     Indication: BRONCHITIS

REACTIONS (4)
  - DRUG INTERACTION [None]
  - COUGH [None]
  - BRONCHITIS [None]
  - NASOPHARYNGITIS [None]
